FAERS Safety Report 7421175 (Version 3)
Quarter: 2014Q1

REPORT INFORMATION
  Report Type: Spontaneous
  Country: US (occurrence: US)
  Receive Date: 20100616
  Receipt Date: 20140207
  Transmission Date: 20141002
  Serious: Yes (Hospitalization, Other)
  Sender: FDA-Public Use
  Company Number: US-ASTRAZENECA-2009UW10378

PATIENT
  Age: 71 Year
  Sex: Female
  Weight: 95.3 kg

DRUGS (25)
  1. ATACAND [Suspect]
     Indication: HYPERTENSION
     Route: 048
     Dates: start: 1999
  2. NEXIUM [Suspect]
     Indication: GASTROOESOPHAGEAL REFLUX DISEASE
     Route: 048
     Dates: start: 1999
  3. CRESTOR [Suspect]
     Indication: BLOOD CHOLESTEROL ABNORMAL
     Route: 048
     Dates: start: 1994, end: 201312
  4. CRESTOR [Suspect]
     Indication: BLOOD CHOLESTEROL ABNORMAL
     Route: 048
     Dates: start: 201312, end: 20140128
  5. OTHER [Suspect]
     Indication: BLOOD CHOLESTEROL ABNORMAL
     Route: 065
  6. LASIX [Concomitant]
     Indication: DIURETIC THERAPY
     Route: 048
     Dates: start: 1994
  7. LASIX [Concomitant]
     Indication: BLOOD PRESSURE ABNORMAL
     Route: 048
     Dates: start: 1994
  8. ANTIBIOTICS [Concomitant]
  9. PROTONIX [Concomitant]
  10. IMDUR ER [Concomitant]
     Indication: CARDIAC DISORDER
     Route: 048
     Dates: start: 2004
  11. NORVASC [Concomitant]
     Indication: BLOOD PRESSURE ABNORMAL
     Route: 048
     Dates: start: 1999
  12. SYNTHROID [Concomitant]
     Indication: GOITRE
     Route: 048
  13. VITAMIN D [Concomitant]
     Indication: FATIGUE
     Route: 048
  14. VITAMIN D [Concomitant]
     Indication: VITAMIN D DECREASED
     Route: 048
  15. FIORICET [Concomitant]
     Indication: MIGRAINE
     Dosage: 50 325 40 MG PRN
     Route: 048
  16. XANAX [Concomitant]
     Indication: NERVOUSNESS
     Route: 048
     Dates: start: 1994
  17. XANAX [Concomitant]
     Indication: TREMOR
     Route: 048
     Dates: start: 1994
  18. PROZAC [Concomitant]
     Indication: DEPRESSION
     Dosage: 3 20 MG DAILY
     Route: 048
     Dates: start: 2012, end: 201401
  19. ASPIRIN [Concomitant]
     Indication: ANTICOAGULANT THERAPY
     Dosage: DAILY
     Route: 048
     Dates: start: 2012
  20. ASPIRIN [Concomitant]
     Indication: CARDIAC DISORDER
     Dosage: DAILY
     Route: 048
     Dates: start: 2012
  21. VITAMIN [Concomitant]
     Route: 048
  22. CLARITIN D [Concomitant]
     Indication: MULTIPLE ALLERGIES
     Dosage: PRN
     Route: 048
  23. EXCEDRIN [Concomitant]
     Indication: MIGRAINE
  24. VALIUM [Concomitant]
  25. SINEQUAN [Concomitant]

REACTIONS (22)
  - Food poisoning [Unknown]
  - Hypertension [Unknown]
  - Aphagia [Unknown]
  - Infected skin ulcer [Unknown]
  - Migraine [Unknown]
  - Gastric perforation [Unknown]
  - Gastric ulcer haemorrhage [Unknown]
  - Rash [Unknown]
  - Malaise [Unknown]
  - Pain [Unknown]
  - Diarrhoea [Unknown]
  - Cardiac stress test abnormal [Unknown]
  - Migraine [Unknown]
  - Mood altered [Unknown]
  - Stress [Unknown]
  - Nervousness [Unknown]
  - Feeling abnormal [Unknown]
  - Depression [Unknown]
  - Weight increased [Unknown]
  - Asthenia [Unknown]
  - Drug dose omission [Unknown]
  - Intentional drug misuse [Unknown]
